FAERS Safety Report 23029472 (Version 1)
Quarter: 2023Q4

REPORT INFORMATION
  Report Type: Spontaneous
  Country: CN (occurrence: CN)
  Receive Date: 20231004
  Receipt Date: 20231004
  Transmission Date: 20240110
  Serious: Yes (Hospitalization, Other)
  Sender: FDA-Public Use
  Company Number: CN-PFIZER INC-PV202300162559

PATIENT
  Age: 41 Year
  Sex: Male
  Weight: 60 kg

DRUGS (6)
  1. CYTARABINE [Suspect]
     Active Substance: CYTARABINE
     Indication: Acute myeloid leukaemia
     Dosage: 18 MG, 2X/DAY (ALSO REPORTED AS 1X/DAY)
     Route: 037
     Dates: start: 20230829, end: 20230922
  2. OMACETAXINE MEPESUCCINATE [Suspect]
     Active Substance: OMACETAXINE MEPESUCCINATE
     Indication: Acute myeloid leukaemia
     Dosage: 2 MG, 1X/DAY
     Route: 037
     Dates: start: 20230829, end: 20230907
  3. VENETOCLAX [Concomitant]
     Active Substance: VENETOCLAX
     Dosage: 100 MG
  4. VENETOCLAX [Concomitant]
     Active Substance: VENETOCLAX
     Dosage: 1200 MG
  5. VENETOCLAX [Concomitant]
     Active Substance: VENETOCLAX
     Dosage: 400 MG
  6. GRANULOCYTE COLONY-STIMULATING FACTOR NOS [Concomitant]
     Active Substance: GRANULOCYTE COLONY-STIMULATING FACTOR NOS
     Dosage: 300 UG

REACTIONS (6)
  - Myelosuppression [Recovering/Resolving]
  - Dizziness [Not Recovered/Not Resolved]
  - Asthenia [Not Recovered/Not Resolved]
  - Pulmonary mass [Unknown]
  - Cystic lung disease [Unknown]
  - Fungal infection [Unknown]

NARRATIVE: CASE EVENT DATE: 20230921
